FAERS Safety Report 16204608 (Version 3)
Quarter: 2022Q1

REPORT INFORMATION
  Report Type: Spontaneous
  Country: HR (occurrence: HR)
  Receive Date: 20190416
  Receipt Date: 20220223
  Transmission Date: 20220423
  Serious: Yes (Death, Other)
  Sender: FDA-Public Use
  Company Number: HR-009507513-1904HRV006651

PATIENT
  Age: 77 Year
  Sex: Male

DRUGS (6)
  1. KEYTRUDA [Suspect]
     Active Substance: PEMBROLIZUMAB
     Indication: Lung adenocarcinoma
     Dosage: UNK
     Dates: start: 20181130, end: 20200206
  2. WARFARIN [Concomitant]
     Active Substance: WARFARIN
     Dosage: 3/4 TABLET PER DAY (1X 3/4 TBL)
     Route: 048
  3. BISOPROLOL FUMARATE [Concomitant]
     Active Substance: BISOPROLOL FUMARATE
     Dosage: 1/2 TWICE A DAY (2.5 MG 2X1/2)
     Route: 048
  4. OMEGA-3-ACID ETHYL ESTER [Concomitant]
     Active Substance: OMEGA-3-ACID ETHYL ESTERS
     Dosage: 1 PER DAY (1X1)
     Route: 048
  5. BROMAZEPAM [Concomitant]
     Active Substance: BROMAZEPAM
     Dosage: 1 TWICE A DAY (2X1)
     Route: 048
  6. HYDROCHLOROTHIAZIDE\RAMIPRIL [Concomitant]
     Active Substance: HYDROCHLOROTHIAZIDE\RAMIPRIL
     Dosage: 1/2 PER DAY (1X1/2)
     Route: 048

REACTIONS (3)
  - Death [Fatal]
  - Deep vein thrombosis [Unknown]
  - Malignant neoplasm progression [Not Recovered/Not Resolved]

NARRATIVE: CASE EVENT DATE: 20181201
